FAERS Safety Report 17814663 (Version 1)
Quarter: 2020Q2

REPORT INFORMATION
  Report Type: Spontaneous
  Country: AR (occurrence: AR)
  Receive Date: 20200522
  Receipt Date: 20200522
  Transmission Date: 20200714
  Serious: Yes (Other)
  Sender: FDA-Public Use
  Company Number: AR-PFIZER INC-2020197818

PATIENT
  Age: 71 Year
  Sex: Male

DRUGS (1)
  1. TRAPAX [Suspect]
     Active Substance: LORAZEPAM
     Dosage: UNK

REACTIONS (4)
  - Somnolence [Unknown]
  - Insomnia [Unknown]
  - Myocardial infarction [Unknown]
  - Gait disturbance [Unknown]
